FAERS Safety Report 9305468 (Version 2)
Quarter: 2013Q2

REPORT INFORMATION
  Report Type: Spontaneous
  Country: CN (occurrence: CN)
  Receive Date: 20130523
  Receipt Date: 20130523
  Transmission Date: 20140414
  Serious: Yes (Life-Threatening, Hospitalization, Disabling)
  Sender: FDA-Public Use
  Company Number: CN-NOVOPROD-375092

PATIENT
  Sex: Male

DRUGS (2)
  1. NOVOLIN 30R [Suspect]
     Indication: PRODUCT USED FOR UNKNOWN INDICATION
     Dosage: 34 IU, QD
     Route: 065
  2. NOVOLIN 30R [Suspect]
     Dosage: UNK

REACTIONS (5)
  - Apallic syndrome [Unknown]
  - Comminuted fracture [Unknown]
  - Fall [Unknown]
  - Insomnia [Recovered/Resolved]
  - Wrong technique in drug usage process [Unknown]
